FAERS Safety Report 10997699 (Version 1)
Quarter: 2015Q2

REPORT INFORMATION
  Report Type: Report from Study
  Country: US (occurrence: US)
  Receive Date: 20150408
  Receipt Date: 20150408
  Transmission Date: 20150821
  Serious: Yes (Life-Threatening, Other)
  Sender: FDA-Public Use
  Company Number: US-PFIZER INC-2015117372

PATIENT
  Sex: Male

DRUGS (2)
  1. MORPHINE SULFATE. [Suspect]
     Active Substance: MORPHINE SULFATE
     Indication: POSTOPERATIVE ANALGESIA
     Dosage: 8.4 MG, UNK
     Route: 008
  2. BUPIVACAINE [Suspect]
     Active Substance: BUPIVACAINE
     Dosage: UNK
     Route: 008

REACTIONS (4)
  - Apnoea [Unknown]
  - Cyanosis [Unknown]
  - Respiratory depression [Unknown]
  - Brain injury [Unknown]
